FAERS Safety Report 20184396 (Version 1)
Quarter: 2021Q4

REPORT INFORMATION
  Report Type: Spontaneous
  Country: US (occurrence: US)
  Receive Date: 20211214
  Receipt Date: 20211214
  Transmission Date: 20220303
  Serious: No
  Sender: FDA-Public Use
  Company Number: US-ENDO PHARMACEUTICALS INC-2021-012256

PATIENT
  Age: 64 Year
  Sex: Female
  Weight: 73.923 kg

DRUGS (2)
  1. FROVA [Suspect]
     Active Substance: FROVATRIPTAN SUCCINATE
     Indication: Migraine
     Dosage: 2.5 MG, UNKNOWN
     Route: 065
     Dates: start: 20211006
  2. FROVA [Suspect]
     Active Substance: FROVATRIPTAN SUCCINATE
     Dosage: 2.5 MG, UNKNOWN
     Route: 065
     Dates: start: 20211008

REACTIONS (2)
  - Migraine [Unknown]
  - Therapeutic product effect decreased [Unknown]

NARRATIVE: CASE EVENT DATE: 20211010
